FAERS Safety Report 21189481 (Version 1)
Quarter: 2022Q3

REPORT INFORMATION
  Report Type: Spontaneous
  Country: CA (occurrence: CA)
  Receive Date: 20220809
  Receipt Date: 20220809
  Transmission Date: 20221027
  Serious: Yes (Other)
  Sender: FDA-Public Use
  Company Number: None

PATIENT
  Sex: Male

DRUGS (4)
  1. TACROLIMUS [Suspect]
     Active Substance: TACROLIMUS
     Route: 064
  2. AZATHIOPRINE [Suspect]
     Active Substance: AZATHIOPRINE
     Route: 064
  3. ERYTHROMYCIN [Suspect]
     Active Substance: ERYTHROMYCIN
     Route: 064
  4. PREDNISONE [Suspect]
     Active Substance: PREDNISONE
     Route: 064

REACTIONS (4)
  - Foetal exposure during pregnancy [Unknown]
  - Foetal growth restriction [Unknown]
  - Low birth weight baby [Unknown]
  - Premature baby [Unknown]
